FAERS Safety Report 7371237-7 (Version None)
Quarter: 2011Q1

REPORT INFORMATION
  Report Type: 
  Country: None (occurrence: None)
  Receive Date: 20110321
  Receipt Date: 20110321
  Transmission Date: 20110831
  Serious: Yes (Other)
  Sender: FDA-Public Use
  Company Number: None

PATIENT
  Age: 7 Year
  Sex: Male
  Weight: 36.2878 kg

DRUGS (1)
  1. NASONEX [Suspect]
     Indication: SINUSITIS
     Dosage: 1 SPRAY

REACTIONS (2)
  - BLINDNESS TRANSIENT [None]
  - EYE IRRITATION [None]
